FAERS Safety Report 11067877 (Version 1)
Quarter: 2015Q2

REPORT INFORMATION
  Report Type: Spontaneous
  Country: US (occurrence: US)
  Receive Date: 20150427
  Receipt Date: 20150427
  Transmission Date: 20150821
  Serious: No
  Sender: FDA-Public Use
  Company Number: US-AMGEN-USASP2015039784

PATIENT
  Age: 52 Year
  Sex: Female

DRUGS (1)
  1. ENBREL [Suspect]
     Active Substance: ETANERCEPT
     Indication: RHEUMATOID ARTHRITIS
     Dosage: 50 MG, QWK
     Route: 065
     Dates: start: 20130829, end: 201502

REACTIONS (3)
  - Musculoskeletal pain [Not Recovered/Not Resolved]
  - Activities of daily living impaired [Not Recovered/Not Resolved]
  - Arthralgia [Not Recovered/Not Resolved]

NARRATIVE: CASE EVENT DATE: 2015
